FAERS Safety Report 15744150 (Version 8)
Quarter: 2019Q2

REPORT INFORMATION
  Report Type: Spontaneous
  Country: US (occurrence: US)
  Receive Date: 20181220
  Receipt Date: 20190603
  Transmission Date: 20190711
  Serious: No
  Sender: FDA-Public Use
  Company Number: US-PFIZER INC-2018512118

PATIENT
  Age: 87 Year
  Sex: Female
  Weight: 84 kg

DRUGS (7)
  1. IBRANCE [Suspect]
     Active Substance: PALBOCICLIB
     Dosage: 125 MG, CYCLIC (21 DAYS, THEN OFF 7 DAYS)
     Dates: start: 201903
  2. METOPROLOL. [Concomitant]
     Active Substance: METOPROLOL
     Indication: BLOOD PRESSURE ABNORMAL
     Dosage: 50 MG, 2X/DAY
     Route: 048
  3. LOSARTAN POTASSIUM. [Concomitant]
     Active Substance: LOSARTAN POTASSIUM
     Indication: BLOOD PRESSURE ABNORMAL
     Dosage: 50 MG, 1X/DAY
     Route: 048
  4. IBRANCE [Suspect]
     Active Substance: PALBOCICLIB
     Dosage: 75 MG, CYCLIC (1 CAPSULE PER DAY FOR 3 WEEKS AND THEN OFF FOR 1 WEEK)
     Dates: start: 2018
  5. IBRANCE [Suspect]
     Active Substance: PALBOCICLIB
     Indication: BREAST CANCER FEMALE
     Dosage: 125 MG
     Dates: start: 2018, end: 2018
  6. SYNTHROID [Concomitant]
     Active Substance: LEVOTHYROXINE SODIUM
     Indication: THYROID DISORDER
     Dosage: 112 UG, 1X/DAY
     Route: 048
  7. IBRANCE [Suspect]
     Active Substance: PALBOCICLIB
     Dosage: 75 MG, UNK

REACTIONS (8)
  - Joint swelling [Recovering/Resolving]
  - Stomatitis [Not Recovered/Not Resolved]
  - Peripheral swelling [Recovering/Resolving]
  - Malaise [Unknown]
  - Alopecia [Not Recovered/Not Resolved]
  - Nasal congestion [Unknown]
  - Rhinitis allergic [Unknown]
  - Gingival disorder [Unknown]

NARRATIVE: CASE EVENT DATE: 2018
